FAERS Safety Report 20732869 (Version 27)
Quarter: 2023Q4

REPORT INFORMATION
  Report Type: Spontaneous
  Country: GB (occurrence: GB)
  Receive Date: 20220420
  Receipt Date: 20231018
  Transmission Date: 20240109
  Serious: Yes (Hospitalization, Other)
  Sender: FDA-Public Use
  Company Number: GB-BAXTER-2022BAX006069

PATIENT
  Age: 20 Year
  Sex: Male
  Weight: 78 kg

DRUGS (180)
  1. DOXORUBICIN [Suspect]
     Active Substance: DOXORUBICIN
     Indication: Neoplasm
     Dosage: DOSAGE FORM- SOLUTION FOR INFUSION
     Route: 065
     Dates: start: 20200430, end: 20200818
  2. DOXORUBICIN [Suspect]
     Active Substance: DOXORUBICIN
     Indication: Neoplasm
     Dosage: DOSAGE FORM- SOLUTION FOR INFUSIONUNK
     Route: 065
  3. DOXORUBICIN [Suspect]
     Active Substance: DOXORUBICIN
     Indication: Refractory cancer
     Dosage: DOSAGE FORM- SOLUTION FOR INFUSION
     Route: 065
  4. DOXORUBICIN [Suspect]
     Active Substance: DOXORUBICIN
     Dosage: DOSAGE FORM- SOLUTION FOR INFUSION
     Route: 065
     Dates: start: 20200430, end: 20200818
  5. CYCLOPHOSPHAMIDE [Suspect]
     Active Substance: CYCLOPHOSPHAMIDE
     Indication: Refractory cancer
     Dosage: 250 MG/M2, 21D, POWDER FOR SOLUTION FOR INJECTION (MAXIMUM 5 DAYS EVERY 21 DAYS)
     Route: 042
     Dates: start: 20220221
  6. CYCLOPHOSPHAMIDE [Suspect]
     Active Substance: CYCLOPHOSPHAMIDE
     Indication: Recurrent cancer
     Dosage: 250 MG/M2
     Route: 065
  7. CYCLOPHOSPHAMIDE [Suspect]
     Active Substance: CYCLOPHOSPHAMIDE
     Dosage: UNK
     Route: 065
  8. CYCLOPHOSPHAMIDE [Suspect]
     Active Substance: CYCLOPHOSPHAMIDE
     Dosage: 9 MILLIGRAM/SQ. METER
     Route: 065
  9. CYCLOPHOSPHAMIDE [Suspect]
     Active Substance: CYCLOPHOSPHAMIDE
     Dosage: 250 MG/M2, ((MAXIMUM 5 DAYS EVERY 21 DAYS)
     Route: 065
     Dates: start: 20220221
  10. IFOSFAMIDE [Suspect]
     Active Substance: IFOSFAMIDE
     Indication: Product used for unknown indication
     Dosage: DOSAGE FORM: POWDER FOR SOLUTION FOR INJECTION
     Route: 065
     Dates: start: 20170519, end: 20171118
  11. IFOSFAMIDE [Suspect]
     Active Substance: IFOSFAMIDE
     Indication: Neoplasm
     Dosage: DOSAGE FORM: POWDER FOR SOLUTION FOR INJECTION
     Route: 065
  12. IFOSFAMIDE [Suspect]
     Active Substance: IFOSFAMIDE
     Dosage: DOSAGE FORM: POWDER FOR SOLUTION FOR INJECTION
     Route: 065
  13. IFOSFAMIDE [Suspect]
     Active Substance: IFOSFAMIDE
     Dosage: DOSAGE FORM: POWDER FOR SOLUTION FOR INJECTION
     Route: 065
  14. IFOSFAMIDE [Suspect]
     Active Substance: IFOSFAMIDE
     Dosage: DOSAGE FORM: POWDER FOR SOLUTION FOR INJECTION
     Route: 065
  15. MESNA [Suspect]
     Active Substance: MESNA
     Indication: Neoplasm
     Dosage: UNKNOWN; DOSAGE FORM- SOLUTION FOR INJECTION
     Route: 065
     Dates: start: 20170519, end: 20171118
  16. MESNA [Suspect]
     Active Substance: MESNA
     Indication: Product used for unknown indication
     Dosage: UNKNOWN;
     Route: 065
     Dates: start: 20170515, end: 20171118
  17. MESNA [Suspect]
     Active Substance: MESNA
     Dosage: UNKNOWN; DOSAGE FORM- SOLUTION FOR INJECTION
     Route: 065
     Dates: start: 20170515, end: 20171118
  18. CYCLOPHOSPHAMIDE [Suspect]
     Active Substance: CYCLOPHOSPHAMIDE
     Indication: Refractory cancer
     Dosage: 250 MG/M^2 250 MG/M2, 21D (MAXIMUM 5 DAYS EVERY 21 DAYS)
     Route: 042
     Dates: start: 20220221
  19. CYCLOPHOSPHAMIDE [Suspect]
     Active Substance: CYCLOPHOSPHAMIDE
     Indication: Recurrent cancer
  20. PSEUDOEPHEDRINE HYDROCHLORIDE [Suspect]
     Active Substance: PSEUDOEPHEDRINE HYDROCHLORIDE
     Dosage: 9 MILLIGRAM/SQ. METER, 250 MILLIGRAM/SQ. METER
     Route: 065
     Dates: start: 20220301
  21. VENETOCLAX [Suspect]
     Active Substance: VENETOCLAX
     Indication: Refractory cancer
     Dosage: 800 MG, QD
     Route: 065
     Dates: start: 20220218
  22. VENETOCLAX [Suspect]
     Active Substance: VENETOCLAX
     Indication: Recurrent cancer
     Dosage: ADDITIONAL INFO: ROUTE: OTHER
     Route: 065
  23. VENETOCLAX [Suspect]
     Active Substance: VENETOCLAX
     Dosage: ADDITIONAL INFO: ROUTE: OTHER
     Route: 065
  24. TOPOTECAN HYDROCHLORIDE [Suspect]
     Active Substance: TOPOTECAN HYDROCHLORIDE
     Indication: Refractory cancer
     Dosage: 0.75 MG/M2, 21D  (MAXIMUM 5 DAYS EVERY 21 DAYS)
     Route: 042
     Dates: start: 20220221
  25. TOPOTECAN HYDROCHLORIDE [Suspect]
     Active Substance: TOPOTECAN HYDROCHLORIDE
     Indication: Recurrent cancer
  26. DOCUSATE SODIUM [Suspect]
     Active Substance: DOCUSATE SODIUM
     Indication: Product used for unknown indication
     Dosage: UNK
     Route: 065
     Dates: start: 20220301
  27. DOCUSATE SODIUM [Suspect]
     Active Substance: DOCUSATE SODIUM
     Dosage: UNKNOWN
     Route: 065
     Dates: start: 20220308
  28. DOCUSATE SODIUM [Suspect]
     Active Substance: DOCUSATE SODIUM
     Dosage: STOP DATE: MAR-2022
     Route: 050
     Dates: start: 20220301
  29. DOCUSATE SODIUM [Suspect]
     Active Substance: DOCUSATE SODIUM
     Dosage: UNK (STOP DATE: MAR-2022 )
     Route: 050
     Dates: start: 20220301
  30. DOCUSATE SODIUM [Suspect]
     Active Substance: DOCUSATE SODIUM
     Dosage: UNK
     Route: 050
     Dates: start: 20220501
  31. CETIRIZINE HYDROCHLORIDE [Suspect]
     Active Substance: CETIRIZINE HYDROCHLORIDE
     Indication: Product used for unknown indication
     Dosage: UNK, ZIRTEK ALLERGY, ADDTIONAL INFO: ROUTE: OTHER
     Route: 048
     Dates: start: 20220301
  32. MORPHINE SULFATE [Suspect]
     Active Substance: MORPHINE SULFATE
     Indication: Product used for unknown indication
     Dosage: UNK
     Route: 065
  33. MORPHINE SULFATE [Suspect]
     Active Substance: MORPHINE SULFATE
     Dosage: UNK
     Route: 065
  34. MORPHINE SULFATE [Suspect]
     Active Substance: MORPHINE SULFATE
     Dosage: UNK
     Route: 065
  35. MORPHINE SULFATE [Suspect]
     Active Substance: MORPHINE SULFATE
     Dosage: UNK
     Route: 065
  36. MORPHINE SULFATE [Suspect]
     Active Substance: MORPHINE SULFATE
     Dosage: UNK
     Route: 065
  37. MORPHINE SULFATE [Suspect]
     Active Substance: MORPHINE SULFATE
     Dosage: UNK
     Route: 065
  38. MORPHINE SULFATE [Suspect]
     Active Substance: MORPHINE SULFATE
     Dosage: UNK
     Route: 065
  39. MORPHINE SULFATE [Suspect]
     Active Substance: MORPHINE SULFATE
     Dosage: UNK
     Route: 065
  40. MORPHINE SULFATE [Suspect]
     Active Substance: MORPHINE SULFATE
     Dosage: UNK
     Route: 065
  41. ALUMINUM ACETATE\HYDROCORTISONE ACETATE\LIDOCAINE\ZINC OXIDE [Suspect]
     Active Substance: ALUMINUM ACETATE\HYDROCORTISONE ACETATE\LIDOCAINE\ZINC OXIDE
     Indication: Adverse event
     Dosage: UNK
     Route: 065
  42. ALUMINUM ACETATE\HYDROCORTISONE ACETATE\LIDOCAINE\ZINC OXIDE [Suspect]
     Active Substance: ALUMINUM ACETATE\HYDROCORTISONE ACETATE\LIDOCAINE\ZINC OXIDE
     Dosage: UNK
     Route: 065
  43. ALUMINUM ACETATE\HYDROCORTISONE ACETATE\LIDOCAINE\ZINC OXIDE [Suspect]
     Active Substance: ALUMINUM ACETATE\HYDROCORTISONE ACETATE\LIDOCAINE\ZINC OXIDE
     Dosage: UNK
     Route: 065
  44. ALUMINUM ACETATE\HYDROCORTISONE ACETATE\LIDOCAINE\ZINC OXIDE [Suspect]
     Active Substance: ALUMINUM ACETATE\HYDROCORTISONE ACETATE\LIDOCAINE\ZINC OXIDE
     Dosage: UNK
     Route: 065
  45. ALUMINUM ACETATE\HYDROCORTISONE ACETATE\LIDOCAINE\ZINC OXIDE [Suspect]
     Active Substance: ALUMINUM ACETATE\HYDROCORTISONE ACETATE\LIDOCAINE\ZINC OXIDE
     Dosage: UNK
     Route: 065
  46. ALUMINUM ACETATE\HYDROCORTISONE ACETATE\LIDOCAINE\ZINC OXIDE [Suspect]
     Active Substance: ALUMINUM ACETATE\HYDROCORTISONE ACETATE\LIDOCAINE\ZINC OXIDE
     Dosage: UNK
     Route: 065
  47. INSTILLAGEL [Suspect]
     Active Substance: CHLORHEXIDINE GLUCONATE\LIDOCAINE HYDROCHLORIDE
     Indication: Product used for unknown indication
     Dosage: UNK
     Route: 065
  48. INSTILLAGEL [Suspect]
     Active Substance: CHLORHEXIDINE GLUCONATE\LIDOCAINE HYDROCHLORIDE
     Dosage: UNK
     Route: 065
  49. INSTILLAGEL [Suspect]
     Active Substance: CHLORHEXIDINE GLUCONATE\LIDOCAINE HYDROCHLORIDE
     Dosage: UNK
     Route: 065
  50. INSTILLAGEL [Suspect]
     Active Substance: CHLORHEXIDINE GLUCONATE\LIDOCAINE HYDROCHLORIDE
     Dosage: UNK
     Route: 065
  51. INSTILLAGEL [Suspect]
     Active Substance: CHLORHEXIDINE GLUCONATE\LIDOCAINE HYDROCHLORIDE
     Dosage: UNK
     Route: 065
  52. INSTILLAGEL [Suspect]
     Active Substance: CHLORHEXIDINE GLUCONATE\LIDOCAINE HYDROCHLORIDE
     Dosage: UNK
     Route: 065
  53. INSTILLAGEL [Suspect]
     Active Substance: CHLORHEXIDINE GLUCONATE\LIDOCAINE HYDROCHLORIDE
     Dosage: UNK
     Route: 065
  54. INSTILLAGEL [Suspect]
     Active Substance: CHLORHEXIDINE GLUCONATE\LIDOCAINE HYDROCHLORIDE
     Dosage: UNK
     Route: 065
  55. INSTILLAGEL [Suspect]
     Active Substance: CHLORHEXIDINE GLUCONATE\LIDOCAINE HYDROCHLORIDE
     Dosage: UNK
     Route: 065
  56. INSTILLAGEL [Suspect]
     Active Substance: CHLORHEXIDINE GLUCONATE\LIDOCAINE HYDROCHLORIDE
     Dosage: UNK
     Route: 065
  57. INSTILLAGEL [Suspect]
     Active Substance: CHLORHEXIDINE GLUCONATE\LIDOCAINE HYDROCHLORIDE
     Dosage: UNK
     Route: 065
  58. DOCUSATE SODIUM [Suspect]
     Active Substance: DOCUSATE SODIUM
     Indication: Product used for unknown indication
     Dosage: UNK, STOP DATE: MAR-2022
     Route: 065
     Dates: start: 20220301
  59. DOCUSATE SODIUM [Suspect]
     Active Substance: DOCUSATE SODIUM
     Dosage: UNK
     Route: 065
     Dates: start: 20220308
  60. DOCUSATE SODIUM [Suspect]
     Active Substance: DOCUSATE SODIUM
     Dosage: UNK
     Route: 065
     Dates: start: 20220301
  61. DOCUSATE SODIUM [Suspect]
     Active Substance: DOCUSATE SODIUM
     Dosage: UNK
     Route: 065
     Dates: start: 20230501
  62. DOCUSATE SODIUM [Suspect]
     Active Substance: DOCUSATE SODIUM
     Dosage: UNK
     Route: 065
  63. DOCUSATE SODIUM [Suspect]
     Active Substance: DOCUSATE SODIUM
     Dosage: UNK
     Route: 065
  64. DOCUSATE SODIUM [Suspect]
     Active Substance: DOCUSATE SODIUM
     Dosage: UNK
     Route: 065
  65. DOCUSATE SODIUM [Suspect]
     Active Substance: DOCUSATE SODIUM
     Dosage: UNK
     Route: 065
  66. DOCUSATE SODIUM [Suspect]
     Active Substance: DOCUSATE SODIUM
     Dosage: UNK
     Route: 065
  67. DOCUSATE SODIUM [Suspect]
     Active Substance: DOCUSATE SODIUM
     Dosage: UNK
     Route: 065
  68. CETIRIZINE HYDROCHLORIDE [Suspect]
     Active Substance: CETIRIZINE HYDROCHLORIDE
     Indication: Product used for unknown indication
     Dosage: UNK
     Route: 065
     Dates: start: 20220301
  69. CETIRIZINE HYDROCHLORIDE [Suspect]
     Active Substance: CETIRIZINE HYDROCHLORIDE
     Dosage: 250 MG/M2
     Route: 065
  70. HYDROCORTISONE [Suspect]
     Active Substance: HYDROCORTISONE
     Indication: Adverse event
     Dosage: UNK
     Route: 065
  71. LIDOCAINE [Suspect]
     Active Substance: LIDOCAINE
     Indication: Product used for unknown indication
     Dosage: UNK
     Route: 065
  72. LIDOCAINE [Suspect]
     Active Substance: LIDOCAINE
     Dosage: UNK
     Route: 065
  73. MORPHINE SULFATE [Suspect]
     Active Substance: MORPHINE SULFATE
     Indication: Product used for unknown indication
     Dosage: UNK
     Route: 065
  74. MORPHINE SULFATE [Suspect]
     Active Substance: MORPHINE SULFATE
     Dosage: UNK
     Route: 065
  75. TOPOTECAN HYDROCHLORIDE [Suspect]
     Active Substance: TOPOTECAN HYDROCHLORIDE
     Indication: Recurrent cancer
     Dosage: 0.75 MG/M2, 21D (MAXIMUM 5 DAYS EVERY 21 DAYS);;
     Route: 042
     Dates: start: 20220221
  76. TOPOTECAN HYDROCHLORIDE [Suspect]
     Active Substance: TOPOTECAN HYDROCHLORIDE
     Indication: Refractory cancer
     Dosage: 0.75 MG/M2, 21D (MAXIMUM 5 DAYS EVERY 21 DAYS);;
     Route: 065
     Dates: start: 20220221
  77. TOPOTECAN HYDROCHLORIDE [Suspect]
     Active Substance: TOPOTECAN HYDROCHLORIDE
     Dosage: UNK
     Route: 065
  78. TOPOTECAN HYDROCHLORIDE [Suspect]
     Active Substance: TOPOTECAN HYDROCHLORIDE
     Dosage: UNK
     Route: 065
  79. TOPOTECAN HYDROCHLORIDE [Suspect]
     Active Substance: TOPOTECAN HYDROCHLORIDE
     Dosage: UNK
     Route: 065
  80. TOPOTECAN HYDROCHLORIDE [Suspect]
     Active Substance: TOPOTECAN HYDROCHLORIDE
     Dosage: UNK
     Route: 065
  81. TOPOTECAN HYDROCHLORIDE [Suspect]
     Active Substance: TOPOTECAN HYDROCHLORIDE
     Dosage: UNK
     Route: 065
  82. TOPOTECAN HYDROCHLORIDE [Suspect]
     Active Substance: TOPOTECAN HYDROCHLORIDE
     Dosage: UNK
     Route: 065
  83. TOPOTECAN HYDROCHLORIDE [Suspect]
     Active Substance: TOPOTECAN HYDROCHLORIDE
     Dosage: UNK
     Route: 065
  84. TOPOTECAN HYDROCHLORIDE [Suspect]
     Active Substance: TOPOTECAN HYDROCHLORIDE
     Dosage: UNK
     Route: 065
  85. TOPOTECAN HYDROCHLORIDE [Suspect]
     Active Substance: TOPOTECAN HYDROCHLORIDE
     Dosage: UNK
     Route: 065
  86. TOPOTECAN HYDROCHLORIDE [Suspect]
     Active Substance: TOPOTECAN HYDROCHLORIDE
     Dosage: REGIMEN 6
     Route: 065
  87. HYDROCORTISONE ACETATE [Suspect]
     Active Substance: HYDROCORTISONE ACETATE
     Indication: Adverse event
     Dosage: UNK
     Route: 065
  88. HYDROCORTISONE ACETATE [Suspect]
     Active Substance: HYDROCORTISONE ACETATE
     Dosage: UNK
     Route: 065
  89. HYDROCORTISONE ACETATE [Suspect]
     Active Substance: HYDROCORTISONE ACETATE
     Dosage: UNK
     Route: 065
  90. HYDROCORTISONE ACETATE [Suspect]
     Active Substance: HYDROCORTISONE ACETATE
     Dosage: UNK
     Route: 065
  91. HYDROCORTISONE ACETATE [Suspect]
     Active Substance: HYDROCORTISONE ACETATE
     Dosage: UNK
     Route: 065
  92. HYDROCORTISONE ACETATE [Suspect]
     Active Substance: HYDROCORTISONE ACETATE
     Dosage: UNK
     Route: 065
  93. HYDROCORTISONE ACETATE [Suspect]
     Active Substance: HYDROCORTISONE ACETATE
     Dosage: UNK
     Route: 065
  94. XYLOCAINE [Suspect]
     Active Substance: LIDOCAINE HYDROCHLORIDE
     Indication: Adverse event
     Dosage: UNK
     Route: 065
  95. AMOXICILLIN\CLAVULANATE POTASSIUM [Suspect]
     Active Substance: AMOXICILLIN\CLAVULANATE POTASSIUM
     Indication: Adverse event
     Dosage: AN UNSPECIFIED DOSE AND FREQUENCY
     Route: 050
     Dates: start: 20220331
  96. SODIUM CHLORIDE [Suspect]
     Active Substance: SODIUM CHLORIDE
     Dosage: UNK, THERAPY END DATE 2022
     Route: 065
     Dates: start: 20220301
  97. SODIUM CHLORIDE [Suspect]
     Active Substance: SODIUM CHLORIDE
     Dosage: UNK
     Route: 065
     Dates: start: 20220301
  98. CETIRIZINE HYDROCHLORIDE [Suspect]
     Active Substance: CETIRIZINE HYDROCHLORIDE
     Indication: Product used for unknown indication
     Dosage: UNK
     Route: 065
     Dates: start: 20220301
  99. COTRIMOXAZOLE [Concomitant]
     Active Substance: SULFAMETHOXAZOLE\TRIMETHOPRIM
     Indication: Prophylaxis
     Dosage: (MONDAY, WEDNESDAY AND FRIDAY, 2 IN 1 DAY) (960 MG,1 IN 0.5 D)
     Route: 048
     Dates: start: 20220218
  100. COTRIMOXAZOLE [Concomitant]
     Active Substance: SULFAMETHOXAZOLE\TRIMETHOPRIM
     Indication: Pneumocystis jirovecii pneumonia
  101. LEVOTHYROXINE [Concomitant]
     Active Substance: LEVOTHYROXINE
     Indication: Hypothyroidism
     Dosage: 75 UG, QD
     Route: 048
     Dates: start: 20200707
  102. ONDANSETRON [Concomitant]
     Active Substance: ONDANSETRON
     Indication: Prophylaxis of nausea and vomiting
     Dosage: 24 MG, TID (8 MG, 3 IN ONE DAY), CUMULATIVE DOSE:792 MG
     Route: 065
     Dates: start: 20220218
  103. ONDANSETRON [Concomitant]
     Active Substance: ONDANSETRON
     Indication: Prophylaxis of nausea and vomiting
     Dosage: UNK, CUMULATIVE DOSE:792 MG
     Route: 065
  104. ONDANSETRON [Concomitant]
     Active Substance: ONDANSETRON
     Dosage: 24 MG, TID (8 MG, 3 IN ONE DAY), CUMULATIVE DOSE:792 MG
     Route: 065
     Dates: start: 20220218
  105. ONDANSETRON [Concomitant]
     Active Substance: ONDANSETRON
     Dosage: 24 MG, TID (8 MG, 3 IN ONE DAY)
     Route: 065
     Dates: start: 20220218
  106. ONDANSETRON [Concomitant]
     Active Substance: ONDANSETRON
     Dosage: UNK,CUMULATIVE DOSE:792 MG
     Route: 065
  107. ONDANSETRON [Concomitant]
     Active Substance: ONDANSETRON
     Dosage: UNK, CUMULATIVE DOSE:792 MG
     Route: 065
  108. ONDANSETRON [Concomitant]
     Active Substance: ONDANSETRON
     Dosage: 72 MG, 24 MG, TID (8 MG, 3 IN ONE DAY) (24 MG,3 IN 1 D), CUMULATIVE DOSE:792 MG
     Route: 065
     Dates: start: 20220218
  109. LIPEGFILGRASTIM [Concomitant]
     Active Substance: LIPEGFILGRASTIM
     Indication: Prophylaxis
     Dosage: 6 MG, QD
     Route: 058
     Dates: start: 20220227, end: 20220227
  110. LIPEGFILGRASTIM [Concomitant]
     Active Substance: LIPEGFILGRASTIM
     Dosage: UNK, ADDITIONAL INFO: ROUTE:OTHER
     Route: 065
  111. LIPEGFILGRASTIM [Concomitant]
     Active Substance: LIPEGFILGRASTIM
     Dosage: UNK, ADDITIONAL INFO: ROUTE:OTHER
     Route: 065
  112. LIPEGFILGRASTIM [Concomitant]
     Active Substance: LIPEGFILGRASTIM
     Dosage: UNK, ADDITIONAL INFO: ROUTE:OTHER
     Route: 050
  113. PIPERACILLIN SODIUM\TAZOBACTAM SODIUM [Concomitant]
     Active Substance: PIPERACILLIN SODIUM\TAZOBACTAM SODIUM
     Indication: Adverse event
     Dosage: UNKNOWN
     Route: 065
     Dates: start: 20220302
  114. PIPERACILLIN SODIUM\TAZOBACTAM SODIUM [Concomitant]
     Active Substance: PIPERACILLIN SODIUM\TAZOBACTAM SODIUM
     Dosage: UNK
     Route: 065
  115. PIPERACILLIN SODIUM\TAZOBACTAM SODIUM [Concomitant]
     Active Substance: PIPERACILLIN SODIUM\TAZOBACTAM SODIUM
     Dosage: UNK
     Route: 065
  116. PIPERACILLIN SODIUM\TAZOBACTAM SODIUM [Concomitant]
     Active Substance: PIPERACILLIN SODIUM\TAZOBACTAM SODIUM
     Dosage: UNK
     Route: 065
  117. PIPERACILLIN SODIUM\TAZOBACTAM SODIUM [Concomitant]
     Active Substance: PIPERACILLIN SODIUM\TAZOBACTAM SODIUM
     Dosage: UNK
     Route: 065
  118. PIPERACILLIN SODIUM\TAZOBACTAM SODIUM [Concomitant]
     Active Substance: PIPERACILLIN SODIUM\TAZOBACTAM SODIUM
     Dosage: UNK
     Route: 065
  119. PIPERACILLIN SODIUM\TAZOBACTAM SODIUM [Concomitant]
     Active Substance: PIPERACILLIN SODIUM\TAZOBACTAM SODIUM
     Dosage: UNK
     Route: 065
  120. PIPERACILLIN SODIUM\TAZOBACTAM SODIUM [Concomitant]
     Active Substance: PIPERACILLIN SODIUM\TAZOBACTAM SODIUM
     Dosage: UNK
     Route: 065
  121. ACETAMINOPHEN [Concomitant]
     Active Substance: ACETAMINOPHEN
     Indication: Adverse event
     Dosage: UNK
     Route: 065
     Dates: start: 20220308
  122. ACETAMINOPHEN [Concomitant]
     Active Substance: ACETAMINOPHEN
     Dosage: UNK
     Route: 065
  123. ACETAMINOPHEN [Concomitant]
     Active Substance: ACETAMINOPHEN
     Dosage: UNK
     Route: 065
  124. ACETAMINOPHEN [Concomitant]
     Active Substance: ACETAMINOPHEN
     Dosage: UNK
     Route: 065
  125. ZINC OXIDE [Concomitant]
     Active Substance: ZINC OXIDE
     Indication: Product used for unknown indication
     Dosage: UNK
     Route: 065
  126. ZINC OXIDE [Concomitant]
     Active Substance: ZINC OXIDE
     Dosage: UNK
     Route: 065
  127. ZINC OXIDE [Concomitant]
     Active Substance: ZINC OXIDE
     Dosage: UNK
     Route: 065
  128. ZINC OXIDE [Concomitant]
     Active Substance: ZINC OXIDE
     Dosage: UNK
     Route: 065
  129. ZINC OXIDE [Concomitant]
     Active Substance: ZINC OXIDE
     Dosage: UNK
     Route: 065
  130. ZINC OXIDE [Concomitant]
     Active Substance: ZINC OXIDE
     Dosage: UNK
     Route: 065
  131. LIDOCAINE [Concomitant]
     Active Substance: LIDOCAINE
     Indication: Product used for unknown indication
     Dosage: UNK
     Route: 065
  132. LIDOCAINE [Concomitant]
     Active Substance: LIDOCAINE
     Dosage: UNK
     Route: 065
  133. CLONIDINE [Concomitant]
     Active Substance: CLONIDINE
     Indication: Proctalgia
     Dosage: UNK
     Route: 065
  134. CLONIDINE [Concomitant]
     Active Substance: CLONIDINE
     Dosage: UNK
     Route: 065
  135. CLONIDINE [Concomitant]
     Active Substance: CLONIDINE
     Dosage: UNK
     Route: 065
  136. CLONIDINE [Concomitant]
     Active Substance: CLONIDINE
     Dosage: UNK
     Route: 065
  137. COTRIMOXAZOLE [Concomitant]
     Active Substance: SULFAMETHOXAZOLE\TRIMETHOPRIM
     Indication: Prophylaxis
     Dosage: 960 MG, BID (MONDAY, WEDNESDAY AND FRIDAY, 2 IN 1 DAY)
     Route: 048
     Dates: start: 20220218
  138. COTRIMOXAZOLE [Concomitant]
     Active Substance: SULFAMETHOXAZOLE\TRIMETHOPRIM
     Indication: Pneumocystis jirovecii pneumonia
     Dosage: UNK
     Route: 050
  139. FENTANYL [Concomitant]
     Active Substance: FENTANYL
     Indication: Proctalgia
     Dosage: UNK
     Route: 065
  140. FENTANYL [Concomitant]
     Active Substance: FENTANYL
     Dosage: UNK
     Route: 065
  141. FENTANYL [Concomitant]
     Active Substance: FENTANYL
     Dosage: UNK
     Route: 065
  142. FENTANYL [Concomitant]
     Active Substance: FENTANYL
     Dosage: UNK
     Route: 065
  143. KETAMINE [Concomitant]
     Active Substance: KETAMINE
     Indication: Proctalgia
     Dosage: ADDITIONAL INFO: ROUTE:
     Route: 065
  144. KETAMINE [Concomitant]
     Active Substance: KETAMINE
     Dosage: ADDITIONAL INFO: ROUTE:
     Route: 065
  145. KETAMINE [Concomitant]
     Active Substance: KETAMINE
     Dosage: ADDITIONAL INFO: ROUTE:
     Route: 065
  146. POLYETHYLENE GLYCOLS [Concomitant]
     Active Substance: POLYETHYLENE GLYCOLS
     Indication: Proctalgia
     Dosage: UNK
     Route: 065
  147. POLYETHYLENE GLYCOLS [Concomitant]
     Active Substance: POLYETHYLENE GLYCOLS
     Dosage: UNK
     Route: 065
  148. POLYETHYLENE GLYCOLS [Concomitant]
     Active Substance: POLYETHYLENE GLYCOLS
     Dosage: UNK
     Route: 065
  149. POLYETHYLENE GLYCOLS [Concomitant]
     Active Substance: POLYETHYLENE GLYCOLS
     Dosage: UNK
     Route: 065
  150. MEROPENEM [Concomitant]
     Active Substance: MEROPENEM
     Indication: Proctalgia
     Dosage: UNK
     Route: 065
  151. MEROPENEM [Concomitant]
     Active Substance: MEROPENEM
     Dosage: UNK
     Route: 065
  152. SULFAMETHOXAZOLE [Concomitant]
     Active Substance: SULFAMETHOXAZOLE
     Indication: Product used for unknown indication
     Dosage: UNK
     Route: 065
  153. SULFAMETHOXAZOLE [Concomitant]
     Active Substance: SULFAMETHOXAZOLE
     Dosage: UNK
     Route: 065
  154. SULFAMETHOXAZOLE [Concomitant]
     Active Substance: SULFAMETHOXAZOLE
     Dosage: UNK
     Route: 065
  155. SULFAMETHOXAZOLE [Concomitant]
     Active Substance: SULFAMETHOXAZOLE
     Dosage: UNK
     Route: 065
  156. SULFAMETHOXAZOLE [Concomitant]
     Active Substance: SULFAMETHOXAZOLE
     Dosage: UNK
     Route: 065
  157. SULFAMETHOXAZOLE [Concomitant]
     Active Substance: SULFAMETHOXAZOLE
     Dosage: UNK
     Route: 065
  158. TEICOPLANIN [Concomitant]
     Active Substance: TEICOPLANIN
     Indication: Proctalgia
     Dosage: UNK
     Route: 065
  159. TEICOPLANIN [Concomitant]
     Active Substance: TEICOPLANIN
     Dosage: UNK
     Route: 065
  160. TEICOPLANIN [Concomitant]
     Active Substance: TEICOPLANIN
     Dosage: UNK
     Route: 065
  161. TEICOPLANIN [Concomitant]
     Active Substance: TEICOPLANIN
     Dosage: UNK
     Route: 065
  162. TRIMETHOPRIM [Concomitant]
     Active Substance: TRIMETHOPRIM
     Indication: Product used for unknown indication
     Dosage: UNK
     Route: 065
  163. TRIMETHOPRIM [Concomitant]
     Active Substance: TRIMETHOPRIM
     Dosage: UNK
     Route: 065
  164. TRIMETHOPRIM [Concomitant]
     Active Substance: TRIMETHOPRIM
     Dosage: UNK
     Route: 065
  165. TRIMETHOPRIM [Concomitant]
     Active Substance: TRIMETHOPRIM
     Dosage: UNK
     Route: 065
  166. TRIMETHOPRIM [Concomitant]
     Active Substance: TRIMETHOPRIM
     Dosage: UNK
     Route: 065
  167. TRIMETHOPRIM [Concomitant]
     Active Substance: TRIMETHOPRIM
     Dosage: UNK
     Route: 065
  168. ZINC SULFATE [Concomitant]
     Active Substance: ZINC SULFATE
     Indication: Haemorrhoids
     Dosage: UNKNOWN
     Route: 065
     Dates: start: 20220204
  169. ZINC SULFATE [Concomitant]
     Active Substance: ZINC SULFATE
     Dosage: UNK
     Route: 065
     Dates: start: 20220204
  170. ANUSOL NOS [Concomitant]
     Active Substance: BALSAM PERU\BENZYL BENZOATE\BISMUTH HYDROXIDE\BISMUTH SUBGALLATE\HYDROCORTISONE ACETATE\ZINC OXIDE
     Indication: Haemorrhoids
     Dosage: UNK, ACTIVE DRUG SUBSTANCE NAME: PERU BALSAM
     Route: 065
     Dates: start: 20220304
  171. LIDOCAINE HYDROCHLORIDE [Concomitant]
     Active Substance: LIDOCAINE HYDROCHLORIDE
     Indication: Product used for unknown indication
     Dosage: UNK
     Route: 065
  172. LIDOCAINE HYDROCHLORIDE [Concomitant]
     Active Substance: LIDOCAINE HYDROCHLORIDE
     Indication: Product used for unknown indication
     Dosage: UNK
     Route: 065
  173. LIDOCAINE HYDROCHLORIDE [Concomitant]
     Active Substance: LIDOCAINE HYDROCHLORIDE
     Dosage: UNK
     Route: 065
  174. LIDOCAINE HYDROCHLORIDE [Concomitant]
     Active Substance: LIDOCAINE HYDROCHLORIDE
     Dosage: UNK
     Route: 065
  175. LIDOCAINE HYDROCHLORIDE [Concomitant]
     Active Substance: LIDOCAINE HYDROCHLORIDE
     Dosage: UNK
     Route: 065
  176. LIDOCAINE HYDROCHLORIDE [Concomitant]
     Active Substance: LIDOCAINE HYDROCHLORIDE
     Dosage: UNK
     Route: 065
  177. LIDOCAINE HYDROCHLORIDE [Concomitant]
     Active Substance: LIDOCAINE HYDROCHLORIDE
     Dosage: UNK
     Route: 065
  178. LIDOCAINE HYDROCHLORIDE [Concomitant]
     Active Substance: LIDOCAINE HYDROCHLORIDE
     Dosage: UNK
     Route: 065
  179. LIDOCAINE HYDROCHLORIDE [Concomitant]
     Active Substance: LIDOCAINE HYDROCHLORIDE
     Dosage: UNK
     Route: 065
  180. AMOXICILLIN\CLAVULANIC ACID [Concomitant]
     Active Substance: AMOXICILLIN\CLAVULANIC ACID
     Indication: Product used for unknown indication
     Dosage: UNK
     Route: 065
     Dates: start: 20220331

REACTIONS (17)
  - Febrile neutropenia [Recovered/Resolved]
  - Febrile neutropenia [Recovered/Resolved]
  - Neutropenia [Unknown]
  - Diarrhoea [Recovering/Resolving]
  - Vomiting [Unknown]
  - Anal inflammation [Unknown]
  - Crohn^s disease [Recovering/Resolving]
  - SARS-CoV-2 test negative [Unknown]
  - Accident [Unknown]
  - Haemorrhoids [Unknown]
  - Proctalgia [Recovered/Resolved]
  - Malaise [Unknown]
  - Pain [Unknown]
  - Back pain [Recovered/Resolved]
  - Body temperature increased [Unknown]
  - Chills [Unknown]
  - Pyrexia [Recovered/Resolved]

NARRATIVE: CASE EVENT DATE: 20220301
